FAERS Safety Report 6248620-6 (Version None)
Quarter: 2009Q2

REPORT INFORMATION
  Report Type: 
  Country: None (occurrence: None)
  Receive Date: 20090624
  Receipt Date: 20090624
  Transmission Date: 20091009
  Serious: Yes (Life-Threatening)
  Sender: FDA-Public Use
  Company Number: None

PATIENT
  Sex: Female
  Weight: 47.6 kg

DRUGS (18)
  1. HEPARIN [Suspect]
     Indication: ARTERIAL THROMBOSIS
     Dosage: 800UNITS/HR IV
     Route: 042
     Dates: start: 20090401, end: 20090402
  2. APAP TAB [Concomitant]
  3. FENTANYL [Concomitant]
  4. FOLIC ACID [Concomitant]
  5. FUROSEMIDE [Concomitant]
  6. LABETALOL HCL [Concomitant]
  7. ATORVASTATIN CALCIUM [Concomitant]
  8. LEVOTHYROXINE SODIUM [Concomitant]
  9. MAALOX [Concomitant]
  10. MAGNESIUM SULFATE [Concomitant]
  11. DIGOXIN [Concomitant]
  12. METOPROLOL [Concomitant]
  13. MORPHINE [Concomitant]
  14. MULTI-VITAMIN [Concomitant]
  15. RANITIDINE [Concomitant]
  16. DOCUSATE [Concomitant]
  17. SENNA [Concomitant]
  18. THIAMINE HCL [Concomitant]

REACTIONS (2)
  - ACTIVATED PARTIAL THROMBOPLASTIN TIME PROLONGED [None]
  - HAEMORRHAGIC STROKE [None]
